FAERS Safety Report 7589910-4 (Version None)
Quarter: 2011Q3

REPORT INFORMATION
  Report Type: 
  Country: None (occurrence: None)
  Receive Date: 20110705
  Receipt Date: 20110629
  Transmission Date: 20111222
  Serious: Yes (Death)
  Sender: FDA-Public Use
  Company Number: US-PFIZER INC-2011145350

PATIENT
  Sex: Male

DRUGS (8)
  1. FIBRE, DIETARY [Concomitant]
  2. SUTENT [Suspect]
     Dosage: 50 MG, 1X/DAY
     Route: 048
  3. DEXAMETHASONE [Concomitant]
     Dosage: 0.25 MG, UNK
  4. ONE-A-DAY [Concomitant]
  5. ZOMETA [Concomitant]
     Dosage: 4MG/5ML
  6. VICODIN [Concomitant]
     Dosage: 5-500MG
  7. MIRALAX [Concomitant]
     Dosage: 3350 NF
  8. LACTULOSE [Concomitant]
     Dosage: 10GM/15

REACTIONS (1)
  - DEATH [None]
